FAERS Safety Report 9827751 (Version 1)
Quarter: 2013Q4

REPORT INFORMATION
  Report Type: Spontaneous
  Country: US (occurrence: None)
  Receive Date: 20131120
  Receipt Date: 20131120
  Transmission Date: 20140711
  Serious: No
  Sender: FDA-Public Use
  Company Number: 1000049318

PATIENT
  Age: 26 Year
  Sex: Female

DRUGS (2)
  1. VIIBYRD [Suspect]
     Indication: DEPRESSION
     Dosage: 10 MG (10 MG, 1 IN 1 D), ORAL
     Route: 048
     Dates: start: 20130922
  2. TRAMADOL [Suspect]
     Indication: BACK PAIN
     Dosage: 50 MG 4 TIMES DAILY (50 MG, PRN)
     Dates: start: 20130922

REACTIONS (1)
  - Insomnia [None]
